FAERS Safety Report 4476544-3 (Version None)
Quarter: 2004Q4

REPORT INFORMATION
  Report Type: 
  Country: None (occurrence: None)
  Receive Date: 20041012
  Receipt Date: 20041001
  Transmission Date: 20050328
  Serious: Yes (Other)
  Sender: FDA-Public Use
  Company Number: 163-20785-04100119

PATIENT

DRUGS (1)
  1. THALOMID [Suspect]
     Indication: LYMPHOCYTIC LEUKAEMIA
     Dosage: 200 MG 1-14 DAYS INCREASING 200 MG Q2WKS UP TO 1000 MG, DAILY, ORAL
     Route: 048

REACTIONS (1)
  - HYPOXIA [None]
